FAERS Safety Report 14270806 (Version 2)
Quarter: 2018Q1

REPORT INFORMATION
  Report Type: Spontaneous
  Country: US (occurrence: US)
  Receive Date: 20171211
  Receipt Date: 20180126
  Transmission Date: 20180508
  Serious: Yes (Other)
  Sender: FDA-Public Use
  Company Number: US-OTSUKA-12296679

PATIENT
  Age: 15 Year
  Sex: Female
  Weight: 53.51 kg

DRUGS (1)
  1. ABILIFY [Suspect]
     Active Substance: ARIPIPRAZOLE
     Indication: DEPRESSION
     Dosage: 30 MG, QD
     Route: 048
     Dates: start: 20030523, end: 20030601

REACTIONS (10)
  - Stupor [Unknown]
  - Feeling abnormal [Unknown]
  - Screaming [Unknown]
  - Restlessness [Unknown]
  - Morbid thoughts [Unknown]
  - Fall [Unknown]
  - Irritability [Unknown]
  - Tremor [Unknown]
  - Intentional self-injury [Unknown]
  - Anxiety [Unknown]

NARRATIVE: CASE EVENT DATE: 20030602
